FAERS Safety Report 8428645-2 (Version None)
Quarter: 2012Q2

REPORT INFORMATION
  Report Type: 
  Country: None (occurrence: None)
  Receive Date: 20120606
  Receipt Date: 20120606
  Transmission Date: 20120825
  Serious: Yes (Other)
  Sender: FDA-Public Use
  Company Number: None

PATIENT
  Sex: Male
  Weight: 121.8 kg

DRUGS (1)
  1. ADCETRIS [Suspect]
     Indication: HODGKIN'S DISEASE
     Dosage: 180MG Q 21 DAYS IV INFUSION (041)
     Route: 042
     Dates: start: 20120514, end: 20120604

REACTIONS (6)
  - ERYTHEMA [None]
  - DYSPNOEA [None]
  - BRONCHOSPASM [None]
  - PRURITUS [None]
  - BURNING SENSATION [None]
  - RASH MACULAR [None]
